FAERS Safety Report 8784199 (Version 2)
Quarter: 2012Q4

REPORT INFORMATION
  Report Type: Spontaneous
  Country: US (occurrence: None)
  Receive Date: 20120830
  Receipt Date: 20120907
  Transmission Date: 20130627
  Serious: Yes (Hospitalization)
  Sender: FDA-Public Use
  Company Number: JPI-P-024167

PATIENT
  Age: 40 Year
  Sex: Female

DRUGS (2)
  1. XYREM [Suspect]
     Indication: NARCOLEPSY
     Dosage: (2.25 gm,2 in 1 d)
     Route: 048
     Dates: start: 20120724
  2. XYREM [Suspect]
     Indication: NARCOLEPSY

REACTIONS (2)
  - Kidney infection [None]
  - Headache [None]
